FAERS Safety Report 25162377 (Version 2)
Quarter: 2025Q2

REPORT INFORMATION
  Report Type: Report from Study
  Country: GB (occurrence: GB)
  Receive Date: 20250404
  Receipt Date: 20250410
  Transmission Date: 20250717
  Serious: No
  Sender: JOHNSON AND JOHNSON
  Company Number: GB-JNJFOC-20250341165

PATIENT
  Age: 78 Year
  Sex: Female

DRUGS (2)
  1. GUSELKUMAB [Suspect]
     Active Substance: GUSELKUMAB
     Indication: Psoriatic arthropathy
     Route: 058
  2. GUSELKUMAB [Suspect]
     Active Substance: GUSELKUMAB
     Route: 058

REACTIONS (3)
  - Product dose omission issue [Unknown]
  - Device deployment issue [Unknown]
  - Renal disorder [Unknown]

NARRATIVE: CASE EVENT DATE: 20250313
